FAERS Safety Report 26076189 (Version 2)
Quarter: 2025Q4

REPORT INFORMATION
  Report Type: Spontaneous
  Country: CA (occurrence: CA)
  Receive Date: 20251121
  Receipt Date: 20251202
  Transmission Date: 20260118
  Serious: Yes (Death)
  Sender: NOVARTIS
  Company Number: CA-002147023-NVSC2025CA179241

PATIENT
  Age: 96 Year
  Sex: Male

DRUGS (2)
  1. BEOVU [Suspect]
     Active Substance: BROLUCIZUMAB-DBLL
     Indication: Neovascular age-related macular degeneration
     Dosage: 6 UG, Q2MO (OD (RIGHT EYE) (6 MG/0.05 ML)
     Route: 031
     Dates: start: 20210209
  2. LUCENTIS [Suspect]
     Active Substance: RANIBIZUMAB
     Indication: Neovascular age-related macular degeneration
     Dosage: 0.05 ML (6 MG/0.05 ML)
     Route: 031
     Dates: start: 201812

REACTIONS (1)
  - Diabetic gangrene [Fatal]
